FAERS Safety Report 7765853-8 (Version None)
Quarter: 2011Q3

REPORT INFORMATION
  Report Type: 
  Country: None (occurrence: None)
  Receive Date: 20110921
  Receipt Date: 20110912
  Transmission Date: 20111222
  Serious: Yes (Death)
  Sender: FDA-Public Use
  Company Number: GW-ABBOTT-11P-071-0851389-00

PATIENT
  Age: 39 Year
  Sex: Female

DRUGS (3)
  1. KALETRA [Suspect]
     Indication: HIV INFECTION
     Dosage: 200/50 MG
     Route: 048
     Dates: start: 20110902, end: 20110904
  2. LAMIVUDINE [Concomitant]
     Indication: HIV INFECTION
     Route: 048
     Dates: start: 20110902, end: 20110904
  3. ABACAVIR [Concomitant]
     Indication: HIV INFECTION
     Route: 048
     Dates: start: 20110902, end: 20110904

REACTIONS (3)
  - DIARRHOEA [None]
  - OPPORTUNISTIC INFECTION [None]
  - DEHYDRATION [None]
